FAERS Safety Report 21134404 (Version 1)
Quarter: 2022Q3

REPORT INFORMATION
  Report Type: Spontaneous
  Country: JP (occurrence: JP)
  Receive Date: 20220726
  Receipt Date: 20220726
  Transmission Date: 20221026
  Serious: Yes (Other)
  Sender: FDA-Public Use
  Company Number: JP-PFIZER INC-PV202200028394

PATIENT
  Sex: Female

DRUGS (1)
  1. ENBREL [Suspect]
     Active Substance: ETANERCEPT
     Dosage: UNK
     Route: 058

REACTIONS (6)
  - Haemorrhage [Unknown]
  - Tremor [Unknown]
  - Swelling [Unknown]
  - Fear of injection [Unknown]
  - Anxiety [Unknown]
  - Injection site haemorrhage [Unknown]
